FAERS Safety Report 6133616-5 (Version None)
Quarter: 2009Q1

REPORT INFORMATION
  Report Type: 
  Country: None (occurrence: None)
  Receive Date: 20090326
  Receipt Date: 20090316
  Transmission Date: 20090719
  Serious: Yes (Hospitalization)
  Sender: FDA-Public Use
  Company Number: US-MERCK-0712USA02384

PATIENT
  Age: 73 Year
  Sex: Female
  Weight: 72 kg

DRUGS (1)
  1. PRINIVIL [Suspect]
     Route: 065
     Dates: end: 20040401

REACTIONS (4)
  - ANGIOEDEMA [None]
  - HYPERGLYCAEMIA [None]
  - LIP SWELLING [None]
  - URTICARIA [None]
